FAERS Safety Report 11633121 (Version 2)
Quarter: 2015Q4

REPORT INFORMATION
  Report Type: Spontaneous
  Country: IT (occurrence: IT)
  Receive Date: 20151015
  Receipt Date: 20151020
  Transmission Date: 20160304
  Serious: Yes (Other)
  Sender: FDA-Public Use
  Company Number: IT-SA-2015SA160697

PATIENT
  Sex: Male

DRUGS (5)
  1. PLAVIX [Suspect]
     Active Substance: CLOPIDOGREL BISULFATE
     Indication: PROPHYLAXIS
     Route: 065
  2. COUMADIN [Suspect]
     Active Substance: WARFARIN SODIUM
     Indication: EMBOLISM VENOUS
     Route: 065
  3. APIXABAN [Concomitant]
     Active Substance: APIXABAN
  4. PLAVIX [Suspect]
     Active Substance: CLOPIDOGREL BISULFATE
     Indication: EMBOLISM VENOUS
     Route: 065
  5. COUMADIN [Suspect]
     Active Substance: WARFARIN SODIUM
     Indication: PROPHYLAXIS
     Route: 065

REACTIONS (1)
  - Renal impairment [Unknown]
